FAERS Safety Report 17339204 (Version 1)
Quarter: 2020Q1

REPORT INFORMATION
  Report Type: Spontaneous
  Country: UY (occurrence: UY)
  Receive Date: 20200129
  Receipt Date: 20200129
  Transmission Date: 20200409
  Serious: Yes (Other)
  Sender: FDA-Public Use
  Company Number: UY-BIOCODEX SA-202000050

PATIENT

DRUGS (4)
  1. DIACOMIT [Suspect]
     Active Substance: STIRIPENTOL
     Dosage: 2500 MG, EVERY ONE DAY
  2. CLOBAZAM. [Concomitant]
     Active Substance: CLOBAZAM
     Indication: SEVERE MYOCLONIC EPILEPSY OF INFANCY
     Dosage: 40 MG, EVERY ONE DAY
  3. SODIUM VALPROATE [Concomitant]
     Active Substance: VALPROATE SODIUM
     Indication: SEVERE MYOCLONIC EPILEPSY OF INFANCY
     Dosage: 250 MG, EVERY ONE DAY
  4. DIACOMIT [Suspect]
     Active Substance: STIRIPENTOL
     Indication: SEVERE MYOCLONIC EPILEPSY OF INFANCY
     Dosage: 1000 MG, EVERY ONE DAY
     Dates: start: 201911

REACTIONS (7)
  - Weight decreased [Unknown]
  - Movement disorder [Unknown]
  - Muscle spasticity [Unknown]
  - Decreased appetite [Unknown]
  - Hepatitis toxic [Unknown]
  - Somnolence [Unknown]
  - Hypotonia [Unknown]
